FAERS Safety Report 13048824 (Version 1)
Quarter: 2016Q4

REPORT INFORMATION
  Report Type: Spontaneous
  Country: US (occurrence: US)
  Receive Date: 20161220
  Receipt Date: 20161220
  Transmission Date: 20170207
  Serious: No
  Sender: FDA-Public Use
  Company Number: None

PATIENT
  Age: 30 Year
  Sex: Female
  Weight: 73.6 kg

DRUGS (1)
  1. PACLITAXEL 6MG/ML 50 ML MULTIDOSE VIAL TEVA [Suspect]
     Active Substance: PACLITAXEL
     Route: 042
     Dates: start: 20161004, end: 20161206

REACTIONS (4)
  - Cough [None]
  - Dyspnoea [None]
  - Erythema [None]
  - Infusion related reaction [None]

NARRATIVE: CASE EVENT DATE: 20161206
